FAERS Safety Report 22520326 (Version 1)
Quarter: 2023Q2

REPORT INFORMATION
  Report Type: Spontaneous
  Country: CO (occurrence: CO)
  Receive Date: 20230605
  Receipt Date: 20230605
  Transmission Date: 20230722
  Serious: Yes (Other)
  Sender: FDA-Public Use
  Company Number: CO-BAYER-2023A076795

PATIENT
  Sex: Female

DRUGS (1)
  1. EYLEA [Suspect]
     Active Substance: AFLIBERCEPT
     Indication: Product used for unknown indication
     Dosage: 2 ML, SOLUTION FOR INJECTION, 40 MG/ML

REACTIONS (2)
  - Blindness unilateral [Not Recovered/Not Resolved]
  - Eye operation [Unknown]

NARRATIVE: CASE EVENT DATE: 20230519
